FAERS Safety Report 8913553 (Version 1)
Quarter: 2012Q4

REPORT INFORMATION
  Report Type: 
  Country: US (occurrence: US)
  Receive Date: 20121119
  Receipt Date: 20121119
  Transmission Date: 20130627
  Serious: Yes (Other)
  Sender: FDA-Public Use
  Company Number: US-NAPPMUNDI-GBR-2012-0012094

PATIENT
  Age: 9 Year
  Sex: Female

DRUGS (8)
  1. HYDROMORPHONE HCL INJECTABLE [Suspect]
     Indication: PAIN
     Dosage: 0.2 mg/hr, with bolus of 0.2 mg/hr every 2 hrs
     Route: 042
  2. MORPHINE SULFATE (SIMILAR TO NDA 19-516) [Suspect]
     Indication: PAIN
     Dosage: 2 mg, q2h
     Route: 042
  3. FENTANYL [Suspect]
     Indication: PAIN
     Dosage: 30 mcg, q1h
  4. METHOTREXATE [Concomitant]
     Indication: PAIN
  5. NAPROXEN [Concomitant]
     Indication: PAIN
  6. ETANERCEPT [Concomitant]
     Indication: PAIN
  7. KETOROLAC [Concomitant]
     Dosage: 15 mg, UNK
     Route: 042
  8. LORAZEPAM [Concomitant]
     Indication: AGITATION
     Dosage: 2 mg, q2h

REACTIONS (4)
  - Hyperaesthesia [Recovering/Resolving]
  - Allodynia [Unknown]
  - Agitation [None]
  - Tachycardia [None]
